FAERS Safety Report 11703710 (Version 1)
Quarter: 2015Q4

REPORT INFORMATION
  Report Type: Spontaneous
  Country: BR (occurrence: BR)
  Receive Date: 20151106
  Receipt Date: 20151106
  Transmission Date: 20160304
  Serious: Yes (Hospitalization)
  Sender: FDA-Public Use
  Company Number: BR-009507513-1511BRA000136

PATIENT
  Age: 31 Year
  Sex: Female
  Weight: 68 kg

DRUGS (1)
  1. NUVARING [Suspect]
     Active Substance: ETHINYL ESTRADIOL\ETONOGESTREL
     Indication: CONTRACEPTION
     Dosage: 1 RING FOR 3 WEEKS AND 1 WEEK OF RING FREE INTERVAL
     Route: 067
     Dates: start: 2006

REACTIONS (6)
  - Metrorrhagia [Recovered/Resolved]
  - Incorrect drug administration duration [Unknown]
  - Metrorrhagia [Recovered/Resolved]
  - Abnormal withdrawal bleeding [Recovered/Resolved]
  - Plastic surgery [Recovered/Resolved]
  - Metrorrhagia [Not Recovered/Not Resolved]

NARRATIVE: CASE EVENT DATE: 2006
